FAERS Safety Report 9841517 (Version 1)
Quarter: 2013Q4

REPORT INFORMATION
  Report Type: Spontaneous
  Country: US (occurrence: None)
  Receive Date: 20131211
  Receipt Date: 20131211
  Transmission Date: 20140711
  Serious: Yes (Other)
  Sender: FDA-Public Use
  Company Number: ALL1-2012-02548

PATIENT
  Age: 29 Year
  Sex: Female
  Weight: 70.3 kg

DRUGS (6)
  1. VYVANSE [Suspect]
     Indication: ATTENTION DEFICIT/HYPERACTIVITY DISORDER
     Route: 048
     Dates: start: 2011, end: 20120509
  2. XANAX (ALPRAZOLAM) [Concomitant]
  3. LAMICTAL (LAMOTRIGINE) [Concomitant]
  4. ZOLOFT (SERTRALINE HYDROCHLORIDE) [Concomitant]
  5. ABILIFY (ARIPIPRAZOLE) [Concomitant]
  6. KLONOPIN (CLONAZEPAM) (TABLETS) [Concomitant]

REACTIONS (8)
  - Depression [None]
  - Asthenia [None]
  - Pain [None]
  - Malaise [None]
  - Insomnia [None]
  - Anxiety [None]
  - Hyperhidrosis [None]
  - Headache [None]
